FAERS Safety Report 14494690 (Version 2)
Quarter: 2018Q1

REPORT INFORMATION
  Report Type: Spontaneous
  Country: US (occurrence: US)
  Receive Date: 20180206
  Receipt Date: 20180208
  Transmission Date: 20180509
  Serious: No
  Sender: FDA-Public Use
  Company Number: US-009507513-1802USA002512

PATIENT
  Age: 25 Year
  Sex: Female
  Weight: 136.5 kg

DRUGS (1)
  1. NUVARING [Suspect]
     Active Substance: ETHINYL ESTRADIOL\ETONOGESTREL
     Indication: CONTRACEPTION
     Dosage: UNK
     Route: 067
     Dates: start: 201710

REACTIONS (1)
  - Abnormal withdrawal bleeding [Unknown]

NARRATIVE: CASE EVENT DATE: 20180205
